FAERS Safety Report 6529148-2 (Version None)
Quarter: 2010Q1

REPORT INFORMATION
  Report Type: 
  Country: None (occurrence: None)
  Receive Date: 20100107
  Receipt Date: 20091230
  Transmission Date: 20100710
  Serious: Yes (Life-Threatening, Hospitalization)
  Sender: FDA-Public Use
  Company Number: GB-TEVA-219765ISR

PATIENT
  Age: 73 Year
  Sex: Female
  Weight: 150 kg

DRUGS (2)
  1. MELOXICAM [Suspect]
  2. METFORMIN HYDROCHLORIDE [Suspect]

REACTIONS (1)
  - HYPERKALAEMIA [None]
